FAERS Safety Report 23483867 (Version 2)
Quarter: 2024Q1

REPORT INFORMATION
  Report Type: Spontaneous
  Country: PT (occurrence: PT)
  Receive Date: 20240205
  Receipt Date: 20240214
  Transmission Date: 20240410
  Serious: Yes (Death, Other)
  Sender: FDA-Public Use
  Company Number: PT-FreseniusKabi-FK202401466

PATIENT
  Age: 60 Year

DRUGS (4)
  1. REMICADE [Suspect]
     Active Substance: INFLIXIMAB
     Indication: Ankylosing spondylitis
     Dosage: FOR  THE  PAST  9  YEARS
     Route: 041
     Dates: start: 2013
  2. REMICADE [Suspect]
     Active Substance: INFLIXIMAB
     Indication: Autoimmune haemolytic anaemia
     Route: 065
  3. PREDNISOLONE [Suspect]
     Active Substance: PREDNISOLONE
     Indication: Ankylosing spondylitis
     Dosage: LOW DOSE ADMINISTERED FOR THE PAST 9 YEARS
     Route: 065
     Dates: start: 2013
  4. PREDNISOLONE [Suspect]
     Active Substance: PREDNISOLONE
     Indication: Autoimmune haemolytic anaemia

REACTIONS (5)
  - Gastrointestinal toxicity [Fatal]
  - Haematotoxicity [Fatal]
  - T-cell lymphoma refractory [Fatal]
  - Epstein-Barr virus test positive [Fatal]
  - Hepatosplenomegaly [Fatal]
